FAERS Safety Report 9492610 (Version 1)
Quarter: 2013Q3

REPORT INFORMATION
  Report Type: Spontaneous
  Country: US (occurrence: US)
  Receive Date: 20130830
  Receipt Date: 20130830
  Transmission Date: 20140515
  Serious: No
  Sender: FDA-Public Use
  Company Number: US-009507513-1308USA014287

PATIENT
  Sex: Male

DRUGS (1)
  1. FOSAMAX [Suspect]
     Indication: OSTEOARTHRITIS
     Dosage: 70 MG, QW
     Route: 048

REACTIONS (2)
  - Dyspepsia [Not Recovered/Not Resolved]
  - Off label use [Unknown]
